FAERS Safety Report 16467097 (Version 1)
Quarter: 2019Q2

REPORT INFORMATION
  Report Type: Spontaneous
  Country: US (occurrence: US)
  Receive Date: 20190624
  Receipt Date: 20190624
  Transmission Date: 20190711
  Serious: No
  Sender: FDA-Public Use
  Company Number: US-AMGEN-USASP2019097625

PATIENT

DRUGS (1)
  1. REPATHA [Suspect]
     Active Substance: EVOLOCUMAB
     Indication: PRODUCT USED FOR UNKNOWN INDICATION
     Dosage: UNK
     Route: 065

REACTIONS (6)
  - Upper-airway cough syndrome [Unknown]
  - Burning sensation [Unknown]
  - Disturbance in attention [Unknown]
  - Urticaria [Unknown]
  - Influenza like illness [Unknown]
  - Bone pain [Unknown]
